FAERS Safety Report 6741971-8 (Version None)
Quarter: 2010Q2

REPORT INFORMATION
  Report Type: 
  Country: None (occurrence: None)
  Receive Date: 20100526
  Receipt Date: 20100519
  Transmission Date: 20101027
  Serious: Yes (Hospitalization)
  Sender: FDA-Public Use
  Company Number: DE-ROCHE-704872

PATIENT
  Sex: Female
  Weight: 42 kg

DRUGS (4)
  1. TRASTUZUMAB [Suspect]
     Route: 042
     Dates: start: 20100325, end: 20100506
  2. PACLITAXEL [Suspect]
     Route: 042
     Dates: start: 20100325, end: 20100506
  3. EFEROX [Concomitant]
     Indication: HYPOTHYROIDISM
     Route: 048
     Dates: start: 20100315
  4. OPIPRAMOL [Concomitant]
     Indication: SLEEP DISORDER
     Route: 048
     Dates: start: 20100408

REACTIONS (2)
  - ALVEOLITIS [None]
  - RESPIRATORY FAILURE [None]
